FAERS Safety Report 8366954-6 (Version None)
Quarter: 2012Q2

REPORT INFORMATION
  Report Type: 
  Country: None (occurrence: None)
  Receive Date: 20120517
  Receipt Date: 20120512
  Transmission Date: 20120825
  Serious: Yes (Hospitalization, Other)
  Sender: FDA-Public Use
  Company Number: PHHY2012CO041512

PATIENT
  Age: 77 Year
  Sex: Female

DRUGS (5)
  1. CALCIUM [Concomitant]
     Dosage: UNK UKN, UNK
  2. ZOLEDRONOC ACID [Suspect]
     Dosage: UNK UKN, UNK
     Route: 042
     Dates: start: 20120504
  3. HYDROCHLOROTHIAZIDE [Concomitant]
     Dosage: UNK UKN, UNK
  4. TIROXINA [Concomitant]
     Dosage: UNK UKN, UNK
  5. LOSARTAN POTASSIUM [Concomitant]
     Dosage: UNK UKN, UNK

REACTIONS (4)
  - URINARY TRACT INFECTION [None]
  - PYREXIA [None]
  - ABDOMINAL PAIN [None]
  - BRONCHITIS [None]
